FAERS Safety Report 14085581 (Version 1)
Quarter: 2017Q4

REPORT INFORMATION
  Report Type: Report from Study
  Country: None (occurrence: US)
  Receive Date: 20171013
  Receipt Date: 20171013
  Transmission Date: 20180321
  Serious: Yes (Other)
  Sender: FDA-Public Use
  Company Number: US-ABBVIE-17K-163-2124192-00

PATIENT
  Age: 59 Year
  Sex: Female

DRUGS (1)
  1. HUMIRA [Suspect]
     Active Substance: ADALIMUMAB
     Indication: RHEUMATOID ARTHRITIS
     Route: 058

REACTIONS (14)
  - Mixed connective tissue disease [Unknown]
  - Hyperhidrosis [Unknown]
  - Cataract [Unknown]
  - Dry eye [Unknown]
  - Restless legs syndrome [Unknown]
  - Hypertension [Unknown]
  - Fluid retention [Unknown]
  - White matter lesion [Unknown]
  - Multiple sclerosis [Unknown]
  - Systemic lupus erythematosus [Unknown]
  - Fatigue [Unknown]
  - Weight increased [Unknown]
  - Muscle spasms [Unknown]
  - Chronic kidney disease [Unknown]

NARRATIVE: CASE EVENT DATE: 2015
